FAERS Safety Report 6760438-4 (Version None)
Quarter: 2010Q2

REPORT INFORMATION
  Report Type: 
  Country: None (occurrence: None)
  Receive Date: 20100608
  Receipt Date: 20100527
  Transmission Date: 20101027
  Serious: Yes (Hospitalization, Other)
  Sender: FDA-Public Use
  Company Number: PHHY2010CA31495

PATIENT
  Sex: Male

DRUGS (3)
  1. CLOZARIL [Suspect]
     Indication: SCHIZOPHRENIA
     Dosage: 300 MG, DAILY
     Route: 048
     Dates: start: 19980521
  2. CLOZARIL [Suspect]
     Dosage: 200 MG, DAILY
     Route: 048
  3. CLOZARIL [Suspect]
     Dosage: 225 MG, DAILY
     Route: 048

REACTIONS (2)
  - CYCLIC VOMITING SYNDROME [None]
  - HALLUCINATION [None]
